FAERS Safety Report 6755343-3 (Version None)
Quarter: 2010Q2

REPORT INFORMATION
  Report Type: 
  Country: None (occurrence: None)
  Receive Date: 20100604
  Receipt Date: 20100524
  Transmission Date: 20101027
  Serious: Yes (Hospitalization)
  Sender: FDA-Public Use
  Company Number: US-JNJFOC-20100509515

PATIENT
  Sex: Female
  Weight: 56.7 kg

DRUGS (5)
  1. STELARA [Suspect]
     Indication: PSORIASIS
     Route: 058
  2. CYCLOSPORINE [Concomitant]
  3. MIRAPEX [Concomitant]
  4. CELEXA [Concomitant]
  5. JUNEA NOS [Concomitant]

REACTIONS (1)
  - CEREBROVASCULAR ACCIDENT [None]
